FAERS Safety Report 8859941 (Version 1)
Quarter: 2012Q4

REPORT INFORMATION
  Report Type: 
  Country: BR (occurrence: BR)
  Receive Date: 20121025
  Receipt Date: 20121025
  Transmission Date: 20130627
  Serious: Yes (Congenital Anomaly, Other)
  Sender: FDA-Public Use
  Company Number: BR-SANOFI-AVENTIS-2012SA076014

PATIENT
  Sex: Male
  Weight: .16 kg

DRUGS (1)
  1. RILUZOLE [Suspect]
     Indication: MATERNAL DRUG EXPOSURE
     Route: 064

REACTIONS (3)
  - Patent ductus arteriosus [Unknown]
  - Foetal exposure during pregnancy [Unknown]
  - Foetal growth restriction [Unknown]
